FAERS Safety Report 12738406 (Version 1)
Quarter: 2016Q3

REPORT INFORMATION
  Report Type: Spontaneous
  Country: US (occurrence: US)
  Receive Date: 20160912
  Receipt Date: 20160912
  Transmission Date: 20161109
  Serious: Yes (Death, Hospitalization)
  Sender: FDA-Public Use
  Company Number: None

PATIENT
  Age: 70 Year
  Sex: Male
  Weight: 97.2 kg

DRUGS (1)
  1. MYLOTARG [Suspect]
     Active Substance: GEMTUZUMAB OZOGAMICIN
     Indication: ACUTE MYELOID LEUKAEMIA
     Route: 048
     Dates: start: 20160826, end: 20160908

REACTIONS (3)
  - Febrile neutropenia [None]
  - Disease progression [None]
  - Acute myeloid leukaemia [None]

NARRATIVE: CASE EVENT DATE: 20160910
